FAERS Safety Report 7615750-3 (Version None)
Quarter: 2011Q3

REPORT INFORMATION
  Report Type: 
  Country: None (occurrence: None)
  Receive Date: 20110715
  Receipt Date: 20110715
  Transmission Date: 20111222
  Serious: Yes (Hospitalization)
  Sender: FDA-Public Use
  Company Number: None

PATIENT
  Age: 60 Year
  Sex: Male
  Weight: 74.1 kg

DRUGS (3)
  1. 5-AZACITADINE [Suspect]
     Indication: RENAL CELL CARCINOMA
     Dosage: 75MG/M2,DAYS 1-7, SUB-CUT
     Route: 058
     Dates: start: 20110405, end: 20110411
  2. BEVACIZUMAB [Suspect]
     Indication: RENAL CELL CARCINOMA
     Dosage: 10MG/KG,EVERY 2 WEEKS, IV
     Route: 042
     Dates: start: 20110405
  3. BEVACIZUMAB [Suspect]
     Indication: RENAL CELL CARCINOMA
     Dosage: 10MG/KG,EVERY 2 WEEKS, IV
     Route: 042
     Dates: start: 20110419

REACTIONS (7)
  - HYPERKALAEMIA [None]
  - RENAL CELL CARCINOMA [None]
  - HYPERCALCAEMIA [None]
  - ABDOMINAL PAIN [None]
  - RENAL FAILURE ACUTE [None]
  - NEOPLASM PROGRESSION [None]
  - ABDOMINAL MASS [None]
